FAERS Safety Report 24787950 (Version 1)
Quarter: 2024Q4

REPORT INFORMATION
  Report Type: Spontaneous
  Country: TR (occurrence: TR)
  Receive Date: 20241230
  Receipt Date: 20241230
  Transmission Date: 20250114
  Serious: No
  Sender: ALKEM
  Company Number: TR-ALKEM LABORATORIES LIMITED-TR-ALKEM-2023-17201

PATIENT
  Age: 8 Year
  Sex: Female

DRUGS (4)
  1. TACROLIMUS [Suspect]
     Active Substance: TACROLIMUS
     Indication: Immunosuppressant drug therapy
     Dosage: UNK, QD 0.2 TO 0.3 MILLIGRAM/KILOGRAM (MG/KG) DAILY
     Route: 048
  2. TACROLIMUS [Suspect]
     Active Substance: TACROLIMUS
     Dosage: UNK, BID (EVERY 12 HOURS (CAPSULES))
     Route: 048
  3. PREDNISOLONE [Concomitant]
     Active Substance: PREDNISOLONE
     Indication: Immunosuppressant drug therapy
     Dosage: 60 MILLIGRAM/SQ. METER, QD  (MAXIMUM DAILY DOSE 60 MG)
     Route: 065
  4. PREDNISOLONE [Concomitant]
     Active Substance: PREDNISOLONE
     Dosage: UNK, QD (TAPERED TO 5 TO 10 MG/D OVER 6 MONTHS)
     Route: 065

REACTIONS (2)
  - Palpitations [Recovered/Resolved]
  - Sinus tachycardia [Recovered/Resolved]
